FAERS Safety Report 9167311 (Version 2)
Quarter: 2013Q1

REPORT INFORMATION
  Report Type: Spontaneous
  Country: US (occurrence: None)
  Receive Date: 20130228
  Receipt Date: 20130314
  Transmission Date: 20140127
  Serious: Yes (Other)
  Sender: FDA-Public Use
  Company Number: JPI-P-030089

PATIENT
  Age: 46 Year
  Sex: Female
  Weight: 63.5 kg

DRUGS (6)
  1. XYREM (500 MILLIGRAM/MILLILITERS, SOLUTION) (SODIUM OXYBATE) [Concomitant]
     Indication: FIBROMYALGIA
     Route: 048
     Dates: start: 20130118
  2. ROSUVASTATIN ALCIUM [Concomitant]
  3. TOPIRAMATE [Concomitant]
  4. ESOMEPRAZOKE MAGNESIUM [Concomitant]
  5. BUPROPION [Concomitant]
  6. LEVOTHYROXINE SODIUM [Concomitant]

REACTIONS (1)
  - Pneumonia [None]
